FAERS Safety Report 23367017 (Version 2)
Quarter: 2024Q2

REPORT INFORMATION
  Report Type: Spontaneous
  Country: GR (occurrence: GR)
  Receive Date: 20240104
  Receipt Date: 20240410
  Transmission Date: 20240716
  Serious: Yes (Other)
  Sender: FDA-Public Use
  Company Number: GR-SUN PHARMACEUTICAL INDUSTRIES LTD-2023R1-426164

PATIENT
  Age: 70 Year
  Sex: Female

DRUGS (1)
  1. BROMFENAC SODIUM [Suspect]
     Active Substance: BROMFENAC SODIUM
     Indication: Perioperative analgesia
     Dosage: UNK, BID
     Route: 065

REACTIONS (1)
  - Ulcerative keratitis [Recovering/Resolving]
